FAERS Safety Report 10788875 (Version 7)
Quarter: 2015Q2

REPORT INFORMATION
  Report Type: Report from Study
  Country: DE (occurrence: DE)
  Receive Date: 20150212
  Receipt Date: 20150611
  Transmission Date: 20150821
  Serious: Yes (Hospitalization, Other)
  Sender: FDA-Public Use
  Company Number: DE-CELGENE-DEU-2015020881

PATIENT
  Age: 62 Year
  Sex: Female
  Weight: 84.6 kg

DRUGS (6)
  1. CYCLOPHOSPHAMIDE. [Suspect]
     Active Substance: CYCLOPHOSPHAMIDE
     Indication: BREAST CANCER
     Route: 041
     Dates: start: 20150203
  2. ABRAXANE [Suspect]
     Active Substance: PACLITAXEL
     Indication: BREAST CANCER
     Route: 041
     Dates: start: 20141120
  3. ABRAXANE [Suspect]
     Active Substance: PACLITAXEL
     Route: 041
     Dates: start: 20141120, end: 20150123
  4. EPIRUBICIN [Suspect]
     Active Substance: EPIRUBICIN
     Indication: BREAST CANCER
     Route: 041
     Dates: start: 20150203
  5. NEULASTA [Suspect]
     Active Substance: PEGFILGRASTIM
     Indication: BREAST CANCER
     Route: 058
     Dates: start: 20150204
  6. CYCLOPHOSPHAMIDE. [Suspect]
     Active Substance: CYCLOPHOSPHAMIDE
     Route: 041
     Dates: start: 20150224

REACTIONS (3)
  - Fatigue [Recovered/Resolved]
  - Deafness unilateral [Recovered/Resolved]
  - Vertigo [Recovered/Resolved]

NARRATIVE: CASE EVENT DATE: 20150125
